FAERS Safety Report 19939637 (Version 6)
Quarter: 2022Q1

REPORT INFORMATION
  Report Type: Spontaneous
  Country: PL (occurrence: PL)
  Receive Date: 20211011
  Receipt Date: 20220117
  Transmission Date: 20220423
  Serious: Yes (Other)
  Sender: FDA-Public Use
  Company Number: PL-002147023-NVSC2021PL217368

PATIENT
  Age: 64 Year
  Sex: Male

DRUGS (15)
  1. ATORVASTATIN CALCIUM [Suspect]
     Active Substance: ATORVASTATIN CALCIUM
     Dosage: 20 MG
  2. EPLERENONE [Suspect]
     Active Substance: EPLERENONE
     Dosage: UNK
  3. CARVEDILOL [Suspect]
     Active Substance: CARVEDILOL
     Dosage: 12.5 MG, 2X/DAY
  4. CARVEDILOL [Suspect]
     Active Substance: CARVEDILOL
     Dosage: 25-0-12.5 MG
     Route: 065
  5. ASPIRIN [Suspect]
     Active Substance: ASPIRIN
     Dosage: 100 MG
  6. ALLOPURINOL [Suspect]
     Active Substance: ALLOPURINOL
     Dosage: 100 MG
  7. METFORMIN [Suspect]
     Active Substance: METFORMIN HYDROCHLORIDE
     Dosage: 850 MG, 2X/DAY
  8. RAMIPRIL [Suspect]
     Active Substance: RAMIPRIL
     Dosage: 5 MG, 2X/DAY
  9. RAMIPRIL [Suspect]
     Active Substance: RAMIPRIL
     Dosage: 5 MG, BID
  10. SACUBITRIL\VALSARTAN [Suspect]
     Active Substance: SACUBITRIL\VALSARTAN
     Indication: Cardiac failure
     Dosage: 24/26 BID
  11. SACUBITRIL\VALSARTAN [Suspect]
     Active Substance: SACUBITRIL\VALSARTAN
     Dosage: 49/51 BID
  12. TORSEMIDE [Suspect]
     Active Substance: TORSEMIDE
     Dosage: 20 MG, 1X/DAY
  13. SPIRONOLACTONE [Suspect]
     Active Substance: SPIRONOLACTONE
     Dosage: UNK
  14. EZETIMIBE [Suspect]
     Active Substance: EZETIMIBE
     Dosage: 10 MG
  15. DAPAGLIFLOZIN [Suspect]
     Active Substance: DAPAGLIFLOZIN
     Dosage: 10 MG

REACTIONS (10)
  - Diabetes mellitus [Unknown]
  - Type V hyperlipidaemia [Unknown]
  - Abdominal distension [Unknown]
  - Hypertension [Unknown]
  - Blood pressure decreased [Unknown]
  - Obesity [Unknown]
  - Oedema peripheral [Unknown]
  - Nonalcoholic fatty liver disease [Unknown]
  - Fatigue [Unknown]
  - Hyperuricaemia [Unknown]
